FAERS Safety Report 23386407 (Version 2)
Quarter: 2024Q1

REPORT INFORMATION
  Report Type: Spontaneous
  Country: US (occurrence: None)
  Receive Date: 20240110
  Receipt Date: 20240124
  Transmission Date: 20240410
  Serious: Yes (Hospitalization)
  Sender: FDA-Public Use
  Company Number: US-ROCHE-3487327

PATIENT
  Age: 72 Year
  Sex: Female

DRUGS (34)
  1. XOLAIR [Suspect]
     Active Substance: OMALIZUMAB
     Indication: Asthma
     Dosage: STRENGTH: 75MG/0.5ML
     Route: 058
     Dates: start: 20231124
  2. XOLAIR [Suspect]
     Active Substance: OMALIZUMAB
  3. XOLAIR [Suspect]
     Active Substance: OMALIZUMAB
  4. XOLAIR [Suspect]
     Active Substance: OMALIZUMAB
     Dosage: STRENGTH: 150MG/ML
     Route: 058
     Dates: start: 20231124
  5. XOLAIR [Suspect]
     Active Substance: OMALIZUMAB
  6. XOLAIR [Suspect]
     Active Substance: OMALIZUMAB
  7. DEPAKOTE [Concomitant]
     Active Substance: DIVALPROEX SODIUM
  8. PROVENTIL [Concomitant]
     Active Substance: ALBUTEROL
  9. ALBUTEROL [Concomitant]
     Active Substance: ALBUTEROL
  10. TENORMIN [Concomitant]
     Active Substance: ATENOLOL
  11. LIPITOR [Concomitant]
     Active Substance: ATORVASTATIN CALCIUM
  12. ASTELIN [Concomitant]
     Active Substance: AZELASTINE HYDROCHLORIDE
  13. DILTIAZEM [Concomitant]
     Active Substance: DILTIAZEM
  14. EPINEPHRINE [Concomitant]
     Active Substance: EPINEPHRINE
  15. ERGOCALCIFEROL [Concomitant]
     Active Substance: ERGOCALCIFEROL
  16. ZETIA [Concomitant]
     Active Substance: EZETIMIBE
  17. FARXIGA [Concomitant]
     Active Substance: DAPAGLIFLOZIN PROPANEDIOL
  18. ALLEGRA [Concomitant]
     Active Substance: FEXOFENADINE HYDROCHLORIDE
  19. PROZAC [Concomitant]
     Active Substance: FLUOXETINE HYDROCHLORIDE
  20. NEURONTIN [Concomitant]
     Active Substance: GABAPENTIN
  21. GVOKE [Concomitant]
     Active Substance: GLUCAGON
  22. BASAGLAR KWIKPEN [Concomitant]
     Active Substance: INSULIN GLARGINE
  23. GLUCOPHAGE XR [Concomitant]
     Active Substance: METFORMIN HYDROCHLORIDE
  24. SINGULAIR [Concomitant]
     Active Substance: MONTELUKAST SODIUM
  25. PRILOSEC [Concomitant]
     Active Substance: OMEPRAZOLE MAGNESIUM
  26. CHLORASEPTIC SORE THROAT [Concomitant]
     Active Substance: PHENOL
  27. DELTASONE [Concomitant]
     Active Substance: PREDNISONE
  28. PHENERGAN [Concomitant]
     Active Substance: PROMETHAZINE HYDROCHLORIDE
  29. OZEMPIC [Concomitant]
     Active Substance: SEMAGLUTIDE
  30. ALDACTONE [Concomitant]
     Active Substance: SPIRONOLACTONE
  31. IMITREX [Concomitant]
     Active Substance: SUMATRIPTAN SUCCINATE
  32. TRELEGY ELLIPTA [Concomitant]
     Active Substance: FLUTICASONE FUROATE\UMECLIDINIUM BROMIDE\VILANTEROL TRIFENATATE
  33. KENALOG [Concomitant]
     Active Substance: TRIAMCINOLONE ACETONIDE
  34. VALTREX [Concomitant]
     Active Substance: VALACYCLOVIR HYDROCHLORIDE

REACTIONS (6)
  - Wheezing [Unknown]
  - Dyspnoea [Unknown]
  - Dizziness [Unknown]
  - Syncope [Unknown]
  - Meningioma [Unknown]
  - Coronavirus infection [Unknown]

NARRATIVE: CASE EVENT DATE: 20231220
